FAERS Safety Report 11157767 (Version 2)
Quarter: 2015Q3

REPORT INFORMATION
  Report Type: Spontaneous
  Country: US (occurrence: None)
  Receive Date: 20150601
  Receipt Date: 20150917
  Transmission Date: 20151125
  Serious: Yes (Hospitalization)
  Sender: FDA-Public Use
  Company Number: 1224850-2015-00039

PATIENT
  Age: 82 Year
  Sex: Female

DRUGS (3)
  1. CALCIUM CONTAINING DRUG [Concomitant]
  2. PHOSLO [Suspect]
     Active Substance: CALCIUM ACETATE
     Route: 048
     Dates: start: 20100101
  3. DIANEAL [Concomitant]
     Active Substance: CALCIUM CHLORIDE\DEXTROSE\MAGNESIUM CHLORIDE\SODIUM CHLORIDE\SODIUM LACTATE

REACTIONS (4)
  - Amnesia [None]
  - Hypertension [None]
  - Muscular weakness [None]
  - Cerebrovascular accident [None]

NARRATIVE: CASE EVENT DATE: 20100901
